FAERS Safety Report 17216313 (Version 1)
Quarter: 2019Q4

REPORT INFORMATION
  Report Type: Spontaneous
  Country: US (occurrence: US)
  Receive Date: 20191230
  Receipt Date: 20191230
  Transmission Date: 20200122
  Serious: No
  Sender: FDA-Public Use
  Company Number: US-FERA PHARMACEUTICALS, LLC-2019PRG00244

PATIENT
  Sex: Male

DRUGS (6)
  1. DEXAMETHASONE. [Concomitant]
     Active Substance: DEXAMETHASONE
     Route: 048
  2. VELCADE [Suspect]
     Active Substance: BORTEZOMIB
     Dosage: UNK
     Dates: start: 2019, end: 2019
  3. REVLIMID [Suspect]
     Active Substance: LENALIDOMIDE
     Dosage: 15 MG, 1X/DAY
     Route: 048
     Dates: start: 201910
  4. DECADRON [Suspect]
     Active Substance: DEXAMETHASONE
     Dosage: REDUCED DOSE
     Dates: start: 2019
  5. DECADRON [Suspect]
     Active Substance: DEXAMETHASONE
     Dosage: INITIAL DOSE
     Dates: start: 2019, end: 2019
  6. REVLIMID [Suspect]
     Active Substance: LENALIDOMIDE
     Indication: PLASMA CELL MYELOMA
     Dosage: 25 MG, 1X/DAY (DOSE INTERUPTED FOR 3 WEEKS)
     Route: 048
     Dates: start: 20190715, end: 2019

REACTIONS (1)
  - Rash pruritic [Unknown]

NARRATIVE: CASE EVENT DATE: 2019
